FAERS Safety Report 9869398 (Version 1)
Quarter: 2014Q1

REPORT INFORMATION
  Report Type: Spontaneous
  Country: US (occurrence: US)
  Receive Date: 20140205
  Receipt Date: 20140205
  Transmission Date: 20141002
  Serious: Yes (Life-Threatening, Hospitalization)
  Sender: FDA-Public Use
  Company Number: US-BAYER-2014-017487

PATIENT
  Age: 26 Year
  Sex: Female
  Weight: 67.57 kg

DRUGS (11)
  1. YASMIN [Suspect]
  2. YAZ [Suspect]
  3. PSEUDOVENT [Concomitant]
     Dosage: 400 MG, UNK
  4. IBUPROFEN [Concomitant]
  5. DECONGESTANT [PSEUDOEPHEDRINE HYDROCHLORIDE] [Concomitant]
  6. DURADRIN [Concomitant]
  7. ACYCLOVIR [ACICLOVIR] [Concomitant]
     Indication: ENCEPHALITIS VIRAL
  8. FIORICET [Concomitant]
     Indication: ANALGESIC THERAPY
  9. ULTRAM [Concomitant]
     Indication: ANALGESIC THERAPY
  10. BETHANECOL [Concomitant]
  11. MIDODRINE [Concomitant]

REACTIONS (1)
  - Pulmonary embolism [None]
